FAERS Safety Report 20363867 (Version 3)
Quarter: 2022Q2

REPORT INFORMATION
  Report Type: Other
  Country: US (occurrence: None)
  Receive Date: 20220121
  Receipt Date: 20220606
  Transmission Date: 20220720
  Serious: Yes (Hospitalization)
  Sender: FDA-Public Use
  Company Number: US-ROCHE-3003831

PATIENT
  Age: 47 Year
  Sex: Female
  Weight: 99.880 kg

DRUGS (4)
  1. OCREVUS [Suspect]
     Active Substance: OCRELIZUMAB
     Indication: Relapsing-remitting multiple sclerosis
     Dosage: DOT : 30/APR/2019, 05/NOV/2019, 07/MAY/2020, 24/NOV/2020, 02/JUN/2021
     Route: 042
     Dates: start: 2019
  2. OCREVUS [Suspect]
     Active Substance: OCRELIZUMAB
     Indication: Progressive multiple sclerosis
  3. MYRBETRIQ [Concomitant]
     Active Substance: MIRABEGRON
  4. BACLOFEN [Concomitant]
     Active Substance: BACLOFEN

REACTIONS (16)
  - COVID-19 [Recovered/Resolved]
  - Synovial cyst [Not Recovered/Not Resolved]
  - Vision blurred [Unknown]
  - Gait disturbance [Unknown]
  - Fatigue [Unknown]
  - Cognitive disorder [Unknown]
  - Red blood cell count decreased [Unknown]
  - Haemoglobin decreased [Unknown]
  - Mean cell volume increased [Unknown]
  - Mean cell haemoglobin concentration decreased [Unknown]
  - Red cell distribution width increased [Unknown]
  - Blood urea increased [Unknown]
  - Blood albumin decreased [Unknown]
  - Protein total decreased [Unknown]
  - Alanine aminotransferase increased [Unknown]
  - CD19 lymphocyte count abnormal [Unknown]

NARRATIVE: CASE EVENT DATE: 20210601
